FAERS Safety Report 6332868-6 (Version None)
Quarter: 2009Q3

REPORT INFORMATION
  Report Type: 
  Country: None (occurrence: None)
  Receive Date: 20090828
  Receipt Date: 20090821
  Transmission Date: 20100115
  Serious: Yes (Hospitalization, Other)
  Sender: FDA-Public Use
  Company Number: HQWYE104826OCT04

PATIENT
  Sex: Female

DRUGS (6)
  1. PREMARIN [Suspect]
  2. PROGESTERONE [Suspect]
  3. ESTRADIOL [Suspect]
  4. OGEN [Suspect]
  5. MEDROXYPROGESTERONE ACETATE [Suspect]
  6. PROVERA [Suspect]

REACTIONS (2)
  - BREAST CANCER [None]
  - CEREBROVASCULAR ACCIDENT [None]
